FAERS Safety Report 8538996 (Version 2)
Quarter: 2012Q4

REPORT INFORMATION
  Report Type: 
  Country: FR (occurrence: FR)
  Receive Date: 20120501
  Receipt Date: 20120914
  Transmission Date: 20130627
  Serious: Yes (Other)
  Sender: FDA-Public Use
  Company Number: FR-BRISTOL-MYERS SQUIBB COMPANY-16539140

PATIENT
  Age: 23 Year
  Sex: Female

DRUGS (1)
  1. DASATINIB [Suspect]
     Indication: CHRONIC MYELOID LEUKAEMIA

REACTIONS (5)
  - Hydrops foetalis [Unknown]
  - Leukopenia [Unknown]
  - Thrombocytopenia [Unknown]
  - Abortion induced [Unknown]
  - Pregnancy [Recovered/Resolved]
